FAERS Safety Report 4691862-1 (Version None)
Quarter: 2005Q2

REPORT INFORMATION
  Report Type: 
  Country: None (occurrence: None)
  Receive Date: 20050614
  Receipt Date: 20050614
  Transmission Date: 20051028
  Serious: Yes (Disabling)
  Sender: FDA-Public Use
  Company Number: None

PATIENT
  Age: 44 Year
  Sex: Female
  Weight: 54.4316 kg

DRUGS (2)
  1. THORAZINE [Suspect]
     Indication: MIGRAINE
  2. THORAZINE [Suspect]
     Indication: POST-TRAUMATIC STRESS DISORDER

REACTIONS (2)
  - ANXIETY [None]
  - DRUG TOXICITY [None]
